FAERS Safety Report 20557365 (Version 1)
Quarter: 2022Q1

REPORT INFORMATION
  Report Type: Report from Study
  Country: CA (occurrence: CA)
  Receive Date: 20220307
  Receipt Date: 20220307
  Transmission Date: 20220424
  Serious: Yes (Other)
  Sender: FDA-Public Use
  Company Number: CA-ABBVIE-22K-028-4302477-00

PATIENT
  Sex: Male

DRUGS (1)
  1. HUMIRA [Suspect]
     Active Substance: ADALIMUMAB
     Indication: Crohn^s disease
     Route: 058
     Dates: start: 20200102, end: 20220224

REACTIONS (14)
  - Suicide attempt [Recovered/Resolved]
  - Depressed mood [Unknown]
  - Fibromyalgia [Unknown]
  - Swelling [Not Recovered/Not Resolved]
  - Osteoporosis [Unknown]
  - Hypersomnia [Unknown]
  - Apathy [Unknown]
  - Mental fatigue [Unknown]
  - Malaise [Unknown]
  - Arthropathy [Unknown]
  - Back disorder [Unknown]
  - Unevaluable event [Unknown]
  - Pain [Unknown]
  - Therapeutic product effect incomplete [Unknown]
